FAERS Safety Report 5239926-8 (Version None)
Quarter: 2007Q1

REPORT INFORMATION
  Report Type: 
  Country: None (occurrence: None)
  Receive Date: 20070216
  Receipt Date: 20070206
  Transmission Date: 20070707
  Serious: Yes (Hospitalization)
  Sender: FDA-Public Use
  Company Number: US-ABBOTT-07P-163-0357174-00

PATIENT
  Sex: Male

DRUGS (12)
  1. BIAXIN [Suspect]
     Indication: HELICOBACTER INFECTION
     Dates: start: 20061204
  2. VARDENAFIL HYDROCHLORIDE [Suspect]
     Indication: ERECTILE DYSFUNCTION
     Route: 048
     Dates: start: 20061028, end: 20061225
  3. VARDENAFIL HYDROCHLORIDE [Suspect]
     Dates: start: 20070121
  4. VARDENAFIL HYDROCHLORIDE [Suspect]
  5. AMLODIPINE BESYLATE [Concomitant]
     Indication: DRUG USE FOR UNKNOWN INDICATION
     Dates: start: 19960101
  6. LANSOPRAZOLE [Concomitant]
     Indication: DRUG USE FOR UNKNOWN INDICATION
     Dates: start: 19960101
  7. DESLORATIDINE [Concomitant]
     Indication: DRUG USE FOR UNKNOWN INDICATION
     Dates: start: 20060101
  8. AMOXICILLIN [Concomitant]
     Indication: HELICOBACTER INFECTION
     Dates: start: 20061204, end: 20061218
  9. METRONIDAZOLE [Concomitant]
     Indication: HELICOBACTER INFECTION
     Dates: start: 20061201, end: 20061201
  10. ERYTHROMYCIN [Concomitant]
     Indication: RESPIRATORY TRACT INFECTION
     Dates: start: 20061221
  11. FAMOTIDINE [Concomitant]
     Indication: DRUG USE FOR UNKNOWN INDICATION
     Dates: start: 20061201, end: 20061201
  12. SILDENAFIL CITRATE [Concomitant]
     Indication: DRUG USE FOR UNKNOWN INDICATION
     Dates: start: 20060801

REACTIONS (7)
  - DIZZINESS [None]
  - DRUG EFFECT DECREASED [None]
  - DYSPNOEA [None]
  - ERECTILE DYSFUNCTION [None]
  - HYPERSENSITIVITY [None]
  - RESPIRATORY TRACT INFECTION [None]
  - URTICARIA [None]
